FAERS Safety Report 21466921 (Version 1)
Quarter: 2022Q4

REPORT INFORMATION
  Report Type: Spontaneous
  Country: US (occurrence: None)
  Receive Date: 20221017
  Receipt Date: 20221017
  Transmission Date: 20230112
  Serious: Yes (Hospitalization)
  Sender: FDA-Public Use
  Company Number: None

PATIENT
  Age: 30 Year
  Sex: Female
  Weight: 72.5 kg

DRUGS (8)
  1. JARDIANCE [Suspect]
     Active Substance: EMPAGLIFLOZIN
     Indication: Type 2 diabetes mellitus
     Dosage: FREQUENCY : DAILY;?
     Route: 048
     Dates: start: 20221006, end: 20221015
  2. bupropion 150mg SR oral tablet [Concomitant]
  3. cephalexin 500mg oral capsule [Concomitant]
  4. Dulaglutide (Trulicity) 3mg SubQ solution [Concomitant]
  5. metformin 750mg XR oral tablet [Concomitant]
  6. Rosuvastatin 10mg oral tablet [Concomitant]
  7. Sertraline 100mg oral tablet [Concomitant]
  8. insulin glargine (Lantus) 100unit/mL pen [Concomitant]

REACTIONS (1)
  - Diabetic ketoacidosis [None]

NARRATIVE: CASE EVENT DATE: 20221015
